FAERS Safety Report 10480029 (Version 6)
Quarter: 2014Q4

REPORT INFORMATION
  Report Type: Spontaneous
  Country: US (occurrence: US)
  Receive Date: 20140929
  Receipt Date: 20141112
  Transmission Date: 20150528
  Serious: Yes (Other)
  Sender: FDA-Public Use
  Company Number: US-UNITED THERAPEUTICS-UNT-2014-007967

PATIENT
  Age: 79 Year
  Sex: Female
  Weight: 68.27 kg

DRUGS (3)
  1. TYVASO [Suspect]
     Active Substance: TREPROSTINIL
     Dosage: 18 ?G, TID
     Dates: start: 20140911, end: 201410
  2. ASPIRIN. [Concomitant]
     Active Substance: ASPIRIN
     Indication: PRODUCT USED FOR UNKNOWN INDICATION
  3. TYVASO [Suspect]
     Active Substance: TREPROSTINIL
     Indication: PULMONARY ARTERIAL HYPERTENSION
     Dosage: 18-54 MCG, QID
     Dates: start: 20140911, end: 20141028

REACTIONS (14)
  - Headache [Unknown]
  - Fatigue [Unknown]
  - Abdominal discomfort [Unknown]
  - Dyspnoea exertional [Unknown]
  - Depression [Unknown]
  - Drug ineffective [Unknown]
  - Dyspnoea [Unknown]
  - Feeling abnormal [Unknown]
  - Condition aggravated [Unknown]
  - Drug intolerance [Unknown]
  - Chest discomfort [Unknown]
  - Wheezing [Unknown]
  - Hypoaesthesia [Unknown]
  - Tremor [Unknown]

NARRATIVE: CASE EVENT DATE: 2014
